FAERS Safety Report 5127806-8 (Version None)
Quarter: 2006Q4

REPORT INFORMATION
  Report Type: 
  Country: None (occurrence: None)
  Receive Date: 20061016
  Receipt Date: 20060906
  Transmission Date: 20070319
  Serious: Yes (Other)
  Sender: FDA-Public Use
  Company Number: US-MERCK-0609USA02549

PATIENT
  Age: 7 Year
  Sex: Male

DRUGS (2)
  1. PRINIVIL [Suspect]
     Indication: PROTEINURIA
     Route: 048
  2. COZAAR [Suspect]
     Indication: PROTEINURIA
     Route: 048

REACTIONS (6)
  - DRUG INTERACTION [None]
  - FATIGUE [None]
  - HYPOTENSION [None]
  - NAUSEA [None]
  - RENAL FAILURE ACUTE [None]
  - SUPRAPUBIC PAIN [None]
